FAERS Safety Report 19411193 (Version 1)
Quarter: 2021Q2

REPORT INFORMATION
  Report Type: Spontaneous
  Country: US (occurrence: US)
  Receive Date: 20210614
  Receipt Date: 20210614
  Transmission Date: 20210717
  Serious: Yes (Other)
  Sender: FDA-Public Use
  Company Number: US-NOVOPROD-819679

PATIENT
  Sex: Female

DRUGS (1)
  1. OZEMPIC [Suspect]
     Active Substance: SEMAGLUTIDE
     Indication: BLOOD GLUCOSE INCREASED
     Dosage: 2 MG, QW
     Route: 058

REACTIONS (2)
  - Hepatic fibrosis [Unknown]
  - Off label use [Unknown]
